FAERS Safety Report 14757917 (Version 1)
Quarter: 2018Q2

REPORT INFORMATION
  Report Type: Report from Study
  Country: CA (occurrence: CA)
  Receive Date: 20180413
  Receipt Date: 20180413
  Transmission Date: 20180711
  Serious: Yes (Death)
  Sender: FDA-Public Use
  Company Number: PHHY2017CA181523

PATIENT
  Age: 92 Year
  Sex: Female

DRUGS (3)
  1. SANDOSTATIN LAR DEPOT [Suspect]
     Active Substance: OCTREOTIDE ACETATE
     Indication: PITUITARY TUMOUR BENIGN
     Dosage: 20 MG, QMO
     Route: 030
     Dates: start: 20080704
  2. AVELOX [Concomitant]
     Active Substance: MOXIFLOXACIN HYDROCHLORIDE
     Indication: PRODUCT USED FOR UNKNOWN INDICATION
     Dosage: 400 MG, UNK (7 DAYS)
     Route: 065
     Dates: start: 20180216, end: 20180222
  3. CLAVULIN [Concomitant]
     Active Substance: AMOXICILLIN\CLAVULANIC ACID
     Indication: PRODUCT USED FOR UNKNOWN INDICATION
     Dosage: 500 MG, TID(10 DAYS)
     Route: 065
     Dates: end: 20180216

REACTIONS (8)
  - Blood pressure systolic increased [Unknown]
  - Productive cough [Unknown]
  - Pyrexia [Unknown]
  - Pain [Unknown]
  - Lung disorder [Unknown]
  - Dyspnoea exertional [Unknown]
  - Generalised oedema [Not Recovered/Not Resolved]
  - Death [Fatal]

NARRATIVE: CASE EVENT DATE: 20171205
